FAERS Safety Report 15849552 (Version 1)
Quarter: 2019Q1

REPORT INFORMATION
  Report Type: Spontaneous
  Country: NL (occurrence: NL)
  Receive Date: 20190121
  Receipt Date: 20190121
  Transmission Date: 20190417
  Serious: Yes (Hospitalization)
  Sender: FDA-Public Use
  Company Number: NL-MYLANLABS-2019M1004099

PATIENT
  Age: 49 Year
  Sex: Female

DRUGS (3)
  1. TERBINAFINE 250 MG TABLETS [Suspect]
     Active Substance: TERBINAFINE
     Indication: ONYCHOMYCOSIS
     Dosage: UNK
     Route: 048
     Dates: start: 20180530, end: 20180621
  2. LYRICA [Concomitant]
     Active Substance: PREGABALIN
     Dosage: 75 MILLIGRAM, BID(2D75MG)
  3. INSULINE LISPRO [Concomitant]
     Dosage: UNK
     Dates: start: 201512

REACTIONS (4)
  - Mobility decreased [Unknown]
  - Urticaria [Unknown]
  - Pruritus [Unknown]
  - Joint swelling [Unknown]

NARRATIVE: CASE EVENT DATE: 20180621
